FAERS Safety Report 8811145 (Version 3)
Quarter: 2012Q4

REPORT INFORMATION
  Report Type: 
  Country: US (occurrence: US)
  Receive Date: 20120927
  Receipt Date: 20121119
  Transmission Date: 20130627
  Serious: Yes (Hospitalization)
  Sender: FDA-Public Use
  Company Number: US-BAYER-2012-099157

PATIENT
  Age: 27 Year
  Sex: Female

DRUGS (13)
  1. YASMIN [Suspect]
     Indication: MENSTRUAL CYCLE PROLONGED
     Dosage: UNK
     Dates: start: 2005, end: 2007
  2. YASMIN [Suspect]
     Indication: PREMENSTRUAL SYNDROME
  3. COMBIVENT [Concomitant]
  4. ZANTAC [Concomitant]
  5. ZOLOFT [Concomitant]
  6. INTAL [Concomitant]
  7. SINGULAIR [Concomitant]
  8. ADVAIR [Concomitant]
  9. RELAFEN [Concomitant]
  10. NASONEX [Concomitant]
  11. SPIRIVA [Concomitant]
  12. ADVAIR DISKUS [Concomitant]
  13. ANALGESICS [Concomitant]

REACTIONS (15)
  - Pulmonary embolism [None]
  - Deep vein thrombosis [None]
  - Fear of disease [None]
  - Injury [None]
  - Pain in extremity [None]
  - Oedema peripheral [None]
  - Dyspnoea [None]
  - Quality of life decreased [None]
  - Anxiety [None]
  - General physical health deterioration [None]
  - Pain [None]
  - Anhedonia [None]
  - Chest pain [None]
  - Migraine [None]
  - Emotional distress [None]
